FAERS Safety Report 5155152-5 (Version None)
Quarter: 2006Q4

REPORT INFORMATION
  Report Type: 
  Country: None (occurrence: None)
  Receive Date: 20061121
  Receipt Date: 20061109
  Transmission Date: 20070319
  Serious: Yes (Disabling)
  Sender: FDA-Public Use
  Company Number: 2006SE06086

PATIENT
  Age: 53 Year
  Sex: Female

DRUGS (3)
  1. SEROQUEL [Suspect]
     Dosage: BETWEEN 100-300 MG
     Route: 048
     Dates: end: 20061106
  2. SEROQUEL [Suspect]
     Route: 048
     Dates: start: 20061107, end: 20061107
  3. SEROQUEL [Suspect]
     Route: 048
     Dates: start: 20061108

REACTIONS (1)
  - PHOTOPSIA [None]
